FAERS Safety Report 9125433 (Version 2)
Quarter: 2013Q2

REPORT INFORMATION
  Report Type: Spontaneous
  Country: US (occurrence: US)
  Receive Date: 20130227
  Receipt Date: 20130425
  Transmission Date: 20140414
  Serious: Yes (Death)
  Sender: FDA-Public Use
  Company Number: US-GLAXOSMITHKLINE-A1013853A

PATIENT
  Age: 93 Year
  Sex: Male

DRUGS (2)
  1. PROMACTA [Suspect]
     Indication: AUTOIMMUNE THROMBOCYTOPENIA
     Dosage: 50MG PER DAY
     Route: 048
     Dates: start: 20120425
  2. UNKNOWN [Concomitant]

REACTIONS (3)
  - Hip fracture [Fatal]
  - Pneumonia aspiration [Fatal]
  - Post procedural pneumonia [Fatal]
